FAERS Safety Report 7833205-8 (Version None)
Quarter: 2011Q4

REPORT INFORMATION
  Report Type: 
  Country: None (occurrence: None)
  Receive Date: 20111024
  Receipt Date: 20111019
  Transmission Date: 20120403
  Serious: Yes (Death, Other)
  Sender: FDA-Public Use
  Company Number: JP-JNJFOC-20100605213

PATIENT
  Sex: Female
  Weight: 65 kg

DRUGS (12)
  1. KERATINAMIN [Concomitant]
     Indication: XERODERMA
     Route: 061
     Dates: start: 20081217
  2. DOXORUBICIN HCL [Suspect]
     Dosage: CYCLE 1
     Route: 042
     Dates: start: 20090630, end: 20090630
  3. FAMOTIDINE [Concomitant]
     Indication: GASTRITIS
     Route: 048
     Dates: start: 20090512
  4. DOXORUBICIN HCL [Suspect]
     Dosage: CYCLE 2
     Route: 042
     Dates: start: 20090901, end: 20090901
  5. CLARITIN [Concomitant]
     Indication: XERODERMA
     Route: 048
     Dates: start: 20080402
  6. PRIMPERAN TAB [Concomitant]
     Indication: PROPHYLAXIS
     Route: 048
     Dates: start: 20071212
  7. DEXALTIN [Concomitant]
     Indication: STOMATITIS
     Route: 049
     Dates: start: 20090929, end: 20091026
  8. DOXORUBICIN HCL [Suspect]
     Indication: OVARIAN CANCER RECURRENT
     Dosage: CYCLE 3
     Route: 042
     Dates: start: 20090929, end: 20090929
  9. DEPAS [Concomitant]
     Indication: INSOMNIA
     Route: 048
     Dates: start: 20080903
  10. DOXORUBICIN HCL [Suspect]
     Route: 042
     Dates: start: 20090728, end: 20090728
  11. PYDOXAL [Concomitant]
     Indication: STOMATITIS
     Route: 048
     Dates: start: 20090929, end: 20091026
  12. AFTACH [Concomitant]
     Indication: STOMATITIS
     Route: 049
     Dates: start: 20090929, end: 20091026

REACTIONS (3)
  - ANAL EROSION [None]
  - STOMATITIS [None]
  - OVARIAN CANCER RECURRENT [None]
